FAERS Safety Report 21708109 (Version 1)
Quarter: 2022Q4

REPORT INFORMATION
  Report Type: Spontaneous
  Country: CN (occurrence: CN)
  Receive Date: 20221209
  Receipt Date: 20221209
  Transmission Date: 20230112
  Serious: Yes (Other)
  Sender: FDA-Public Use
  Company Number: CN-GILEAD-2022-0603583

PATIENT
  Age: 35 Year
  Sex: Female
  Weight: 63 kg

DRUGS (14)
  1. TENOFOVIR DISOPROXIL FUMARATE [Suspect]
     Active Substance: TENOFOVIR DISOPROXIL FUMARATE
     Indication: Product used for unknown indication
     Route: 065
  2. PREDNISONE [Concomitant]
     Active Substance: PREDNISONE
  3. ACETYL ASPARTIC ACID [Concomitant]
  4. TACROLIMUS [Concomitant]
     Active Substance: TACROLIMUS
  5. PROGESTERONE [Concomitant]
     Active Substance: PROGESTERONE
  6. CHORIONIC GONADOTROPHIN [Concomitant]
     Active Substance: CHORIOGONADOTROPIN ALFA
  7. FEN LE [ARIPIPRAZOLE] [Concomitant]
  8. LI SHENG SU [Concomitant]
  9. HEPARIN [Concomitant]
     Active Substance: HEPARIN SODIUM
  10. ESTRADIOL [Concomitant]
     Active Substance: ESTRADIOL
  11. FEMOSTON [DYDROGESTERONE;ESTRADIOL] [Concomitant]
  12. SHI ER TAI BAO WAN [Concomitant]
  13. CALTRATE ADULT [Concomitant]
  14. METHYLPREDNISOLONE [Concomitant]
     Active Substance: METHYLPREDNISOLONE

REACTIONS (7)
  - Tumour necrosis [Unknown]
  - Maternal exposure during pregnancy [Not Recovered/Not Resolved]
  - Poor quality sleep [Unknown]
  - Initial insomnia [Unknown]
  - Abdominal pain [Unknown]
  - Vaginal discharge [Unknown]
  - Thromboelastogram [Unknown]
